FAERS Safety Report 15198451 (Version 1)
Quarter: 2018Q3

REPORT INFORMATION
  Report Type: Spontaneous
  Country: US (occurrence: US)
  Receive Date: 20180725
  Receipt Date: 20180725
  Transmission Date: 20181010
  Serious: No
  Sender: FDA-Public Use
  Company Number: US-ANIPHARMA-2018-US-006486

PATIENT
  Age: 73 Year
  Sex: Male

DRUGS (5)
  1. NILUTAMIDE TABLETS [Suspect]
     Active Substance: NILUTAMIDE
     Dates: start: 200507
  2. CYTADREN [Suspect]
     Active Substance: AMINOGLUTETHIMIDE
     Dates: start: 200610
  3. KETOCONAZOLE. [Suspect]
     Active Substance: KETOCONAZOLE
     Dates: start: 200603
  4. VIVELLE?DOT [Suspect]
     Active Substance: ESTRADIOL
     Dates: start: 200704
  5. CASODEX [Suspect]
     Active Substance: BICALUTAMIDE
     Dates: start: 200701

REACTIONS (1)
  - Liver function test increased [Unknown]
